FAERS Safety Report 4831630-0 (Version None)
Quarter: 2005Q4

REPORT INFORMATION
  Report Type: 
  Country: None (occurrence: None)
  Receive Date: 20051116
  Receipt Date: 20051107
  Transmission Date: 20060501
  Serious: Yes (Hospitalization, Other)
  Sender: FDA-Public Use
  Company Number: 2005143264

PATIENT
  Sex: Female
  Weight: 52.1637 kg

DRUGS (11)
  1. DEPO-PROVERA [Suspect]
     Indication: CONTRACEPTION
     Dosage: 150 MG (150 MG, 1ST INJECTION, EVERY 3 MONTHS)
     Dates: start: 19910101, end: 19910101
  2. CRESTOR [Concomitant]
  3. LIPITOR [Concomitant]
  4. XANAX [Concomitant]
  5. INDERAL [Concomitant]
  6. PREVACID [Concomitant]
  7. PRILOSEC [Concomitant]
  8. VITAMIN B12 [Concomitant]
  9. FLEXERIL [Concomitant]
  10. MULTIVITAMIN [Concomitant]
  11. NAPROXEN [Concomitant]

REACTIONS (14)
  - ABORTION SPONTANEOUS [None]
  - AMENORRHOEA [None]
  - ANAEMIA [None]
  - CAROTID ARTERY OCCLUSION [None]
  - COAGULOPATHY [None]
  - DRUG EXPOSURE BEFORE PREGNANCY [None]
  - FEELING ABNORMAL [None]
  - GASTROOESOPHAGEAL REFLUX DISEASE [None]
  - HEADACHE [None]
  - MENORRHAGIA [None]
  - MIGRAINE [None]
  - OSTEOPENIA [None]
  - PAIN IN EXTREMITY [None]
  - PREGNANCY [None]
